FAERS Safety Report 8110680-5 (Version None)
Quarter: 2012Q1

REPORT INFORMATION
  Report Type: 
  Country: None (occurrence: None)
  Receive Date: 20120203
  Receipt Date: 20120126
  Transmission Date: 20120608
  Serious: Yes (Hospitalization)
  Sender: FDA-Public Use
  Company Number: US-BAYER-2011-061275

PATIENT
  Age: 28 Year
  Sex: Female
  Weight: 90.703 kg

DRUGS (3)
  1. ALLEGRA [Concomitant]
  2. YASMIN [Suspect]
     Dosage: UNK
     Dates: start: 20071101, end: 20080101
  3. ATARAX [Concomitant]

REACTIONS (4)
  - CHOLELITHIASIS [None]
  - GALLBLADDER NON-FUNCTIONING [None]
  - PAIN [None]
  - INJURY [None]
